FAERS Safety Report 9294148 (Version 1)
Quarter: 2013Q2

REPORT INFORMATION
  Report Type: Spontaneous
  Country: JP (occurrence: JP)
  Receive Date: 20130517
  Receipt Date: 20130524
  Transmission Date: 20140414
  Serious: Yes (Hospitalization)
  Sender: FDA-Public Use
  Company Number: JP-009507513-1304JPN011791

PATIENT
  Age: 29 Year
  Sex: Female

DRUGS (6)
  1. KIPRES [Suspect]
     Indication: ASTHMA
     Dosage: 10 MG/DAY
     Route: 048
     Dates: start: 20121231, end: 20130403
  2. KIPRES [Suspect]
     Dosage: 10-MG/DAY SID
     Route: 048
     Dates: start: 20121210
  3. SAIBOKU-TO [Suspect]
     Indication: ASTHMA
     Dosage: 7.5 G, QD
     Route: 048
     Dates: start: 20130107, end: 20130403
  4. CRAVIT [Suspect]
     Indication: BRONCHITIS
     Dosage: 500 G, QD
     Route: 048
     Dates: start: 20130226, end: 20130302
  5. CRAVIT [Suspect]
     Indication: PHARYNGITIS
  6. ADOAIR [Concomitant]
     Dosage: 500 MICROGRAM, QD
     Route: 055
     Dates: start: 20130213

REACTIONS (1)
  - Liver disorder [Recovered/Resolved]
